FAERS Safety Report 5646882-7 (Version None)
Quarter: 2008Q1

REPORT INFORMATION
  Report Type: 
  Country: None (occurrence: None)
  Receive Date: 20080228
  Receipt Date: 20080214
  Transmission Date: 20080703
  Serious: Yes (Other)
  Sender: FDA-Public Use
  Company Number: 2008S1002410

PATIENT
  Age: 36 Year
  Sex: Female

DRUGS (1)
  1. CITALOPRAM HYDROBROMIDE [Suspect]
     Indication: DRUG USE FOR UNKNOWN INDICATION
     Dosage: 10 MG; ORAL
     Route: 048
     Dates: start: 20071210, end: 20080108

REACTIONS (3)
  - COLOUR BLINDNESS [None]
  - VISUAL DISTURBANCE [None]
  - VISUAL FIELD DEFECT [None]
